FAERS Safety Report 4742747-3 (Version None)
Quarter: 2005Q3

REPORT INFORMATION
  Report Type: 
  Country: None (occurrence: None)
  Receive Date: 20050810
  Receipt Date: 20050810
  Transmission Date: 20060218
  Serious: Yes (Hospitalization, Other)
  Sender: FDA-Public Use
  Company Number: None

PATIENT
  Age: 47 Year
  Sex: Male

DRUGS (1)
  1. BEN-GAY GREASELESS PAIN RELIEVING CREAM, PFIZER , CT CORPORATION [Suspect]
     Dosage: ONE TIME
     Dates: start: 20021206

REACTIONS (2)
  - MEDICATION ERROR [None]
  - THERMAL BURN [None]
